FAERS Safety Report 11790448 (Version 1)
Quarter: 2015Q4

REPORT INFORMATION
  Report Type: Spontaneous
  Country: US (occurrence: US)
  Receive Date: 20151201
  Receipt Date: 20151201
  Transmission Date: 20160305
  Serious: No
  Sender: FDA-Public Use
  Company Number: US-ASTRAZENECA-2015SF10064

PATIENT
  Age: 80 Year
  Sex: Female
  Weight: 56.7 kg

DRUGS (7)
  1. PRILOSEC OTC [Suspect]
     Active Substance: OMEPRAZOLE MAGNESIUM
     Indication: GASTROOESOPHAGEAL REFLUX DISEASE
     Route: 048
  2. PRILOSEC [Suspect]
     Active Substance: OMEPRAZOLE MAGNESIUM
     Indication: REFLUX GASTRITIS
     Route: 048
     Dates: end: 20151108
  3. PRILOSEC OTC [Suspect]
     Active Substance: OMEPRAZOLE MAGNESIUM
     Indication: REFLUX GASTRITIS
     Route: 048
     Dates: start: 20151108
  4. PRILOSEC [Suspect]
     Active Substance: OMEPRAZOLE MAGNESIUM
     Indication: GASTROOESOPHAGEAL REFLUX DISEASE
     Route: 048
     Dates: end: 20151108
  5. TYLENOL [Concomitant]
     Active Substance: ACETAMINOPHEN
     Indication: MUSCLE SPASMS
     Dosage: AS REQUIRED
     Route: 048
  6. PRILOSEC OTC [Suspect]
     Active Substance: OMEPRAZOLE MAGNESIUM
     Indication: REFLUX GASTRITIS
     Route: 048
  7. PRILOSEC OTC [Suspect]
     Active Substance: OMEPRAZOLE MAGNESIUM
     Indication: GASTROOESOPHAGEAL REFLUX DISEASE
     Route: 048
     Dates: start: 20151108

REACTIONS (10)
  - Gastrooesophageal reflux disease [Unknown]
  - Body height decreased [Unknown]
  - Muscle spasms [Unknown]
  - Intentional product use issue [Unknown]
  - Drug ineffective [Unknown]
  - Disturbance in attention [Not Recovered/Not Resolved]
  - Dyspepsia [Unknown]
  - Bone density decreased [Unknown]
  - Pain in extremity [Unknown]
  - Regurgitation [Unknown]

NARRATIVE: CASE EVENT DATE: 2014
